FAERS Safety Report 20537836 (Version 1)
Quarter: 2022Q1

REPORT INFORMATION
  Report Type: Other
  Country: DE (occurrence: DE)
  Receive Date: 20220302
  Receipt Date: 20220302
  Transmission Date: 20220423
  Serious: Yes (Other)
  Sender: FDA-Public Use
  Company Number: DE-DENTSPLY-2022SCDP000045

PATIENT
  Age: 57 Year
  Sex: Female
  Weight: 70 kg

DRUGS (2)
  1. XYLOCAINE [Suspect]
     Active Substance: LIDOCAINE HYDROCHLORIDE
     Indication: Joint effusion
     Dosage: UNK (SINGLE INJECTION INTO THE KNEE JOINT, NO KNOWLEDGE OF THE ML SIZE OF THE AMPOULE)
  2. TRIAMCINOLONE ACETONIDE [Suspect]
     Active Substance: TRIAMCINOLONE ACETONIDE
     Indication: Joint effusion
     Dosage: UNK (SINGLE INJECTION INTO THE KNEE JOINT, NO KNOWLEDGE OF THE ML SIZE OF THE AMPOULE)

REACTIONS (7)
  - Arrhythmia [Recovered/Resolved]
  - Blepharitis [Recovered/Resolved]
  - Flushing [Recovered/Resolved]
  - Dry eye [Recovered/Resolved]
  - Vision blurred [Recovered/Resolved]
  - Hypersensitivity [Recovered/Resolved]
  - Feeling hot [Recovered/Resolved]

NARRATIVE: CASE EVENT DATE: 20211101
